FAERS Safety Report 5758120-5 (Version None)
Quarter: 2008Q2

REPORT INFORMATION
  Report Type: 
  Country: None (occurrence: None)
  Receive Date: 20080603
  Receipt Date: 20080603
  Transmission Date: 20081010
  Serious: Yes (Other)
  Sender: FDA-Public Use
  Company Number: None

PATIENT
  Sex: Female
  Weight: 104.3273 kg

DRUGS (2)
  1. LYRICA [Suspect]
     Indication: NEURALGIA
     Dosage: 75MG  1-4X PER DAY PO
     Route: 048
     Dates: start: 20070101, end: 20080101
  2. LYRICA [Suspect]
     Indication: NEUROPATHY PERIPHERAL
     Dosage: 75MG  1-4X PER DAY PO
     Route: 048
     Dates: start: 20070101, end: 20080101

REACTIONS (3)
  - SOMNOLENCE [None]
  - STOMATITIS [None]
  - VISUAL ACUITY REDUCED [None]
